FAERS Safety Report 4870923-8 (Version None)
Quarter: 2006Q1

REPORT INFORMATION
  Report Type: 
  Country: None (occurrence: None)
  Receive Date: 20060103
  Receipt Date: 20051122
  Transmission Date: 20060701
  Serious: Yes (Other)
  Sender: FDA-Public Use
  Company Number: PHBS2005JP17284

PATIENT
  Age: 1 Year
  Sex: Female

DRUGS (1)
  1. SANDOSTATIN [Suspect]
     Indication: GASTROINTESTINAL HAEMORRHAGE
     Dosage: 50 UG/DAY

REACTIONS (4)
  - BLOOD CREATINE PHOSPHOKINASE INCREASED [None]
  - PYREXIA [None]
  - RHABDOMYOLYSIS [None]
  - TRANSAMINASES INCREASED [None]
